FAERS Safety Report 10232634 (Version 1)
Quarter: 2014Q2

REPORT INFORMATION
  Report Type: Spontaneous
  Country: US (occurrence: None)
  Receive Date: 20140611
  Receipt Date: 20140611
  Transmission Date: 20141212
  Serious: Yes (Disabling)
  Sender: FDA-Public Use
  Company Number: None

PATIENT
  Age: 63 Year
  Sex: Female
  Weight: 79.38 kg

DRUGS (1)
  1. LEVOQUIN [Suspect]
     Indication: RESPIRATORY TRACT INFECTION
     Dosage: 1   ONCE DAILY
     Dates: start: 20140428, end: 20140504

REACTIONS (8)
  - Haematochezia [None]
  - Neck pain [None]
  - Dyspnoea [None]
  - Hyperhidrosis [None]
  - Quality of life decreased [None]
  - Musculoskeletal pain [None]
  - Pain in extremity [None]
  - Fatigue [None]
